FAERS Safety Report 20703239 (Version 2)
Quarter: 2023Q2

REPORT INFORMATION
  Report Type: Report from Study
  Country: US (occurrence: US)
  Receive Date: 20220413
  Receipt Date: 20230524
  Transmission Date: 20230722
  Serious: No
  Sender: FDA-Public Use
  Company Number: US-ARGENX-2022-ARGX-US000301

PATIENT
  Age: 83 Year
  Sex: Female

DRUGS (3)
  1. VYVGART [Suspect]
     Active Substance: EFGARTIGIMOD ALFA-FCAB
     Indication: Myasthenia gravis
     Dosage: 400 MG/ 20 ML, 1/WEEK
     Dates: start: 20220214
  2. ELIQUIS [Concomitant]
     Active Substance: APIXABAN
     Indication: Thrombosis
     Dosage: UNK
     Route: 042
     Dates: start: 20220107
  3. IVIGLOB EX [Concomitant]
     Active Substance: HUMAN IMMUNOGLOBULIN G
     Indication: Product used for unknown indication
     Dosage: UNK
     Dates: start: 20220101

REACTIONS (14)
  - Drug ineffective [Unknown]
  - Procedural headache [Recovered/Resolved]
  - Urinary tract infection [Recovered/Resolved]
  - Fatigue [Unknown]
  - Paraesthesia [Unknown]
  - Myasthenia gravis [Recovered/Resolved]
  - Blindness transient [Recovered/Resolved]
  - Nocturia [Unknown]
  - Burning sensation [Unknown]
  - Muscular weakness [Unknown]
  - Dyspnoea [Unknown]
  - Malaise [Unknown]
  - Gait disturbance [Unknown]
  - Fall [Unknown]

NARRATIVE: CASE EVENT DATE: 20220221
